FAERS Safety Report 5466238-X (Version None)
Quarter: 2007Q3

REPORT INFORMATION
  Report Type: 
  Country: None (occurrence: None)
  Receive Date: 20070924
  Receipt Date: 20070912
  Transmission Date: 20080115
  Serious: Yes (Other)
  Sender: FDA-Public Use
  Company Number: DE-PFIZER INC-2007077075

PATIENT
  Sex: Female

DRUGS (1)
  1. CYTOTEC [Suspect]
     Route: 048

REACTIONS (4)
  - ABDOMINAL PAIN [None]
  - BRADYCARDIA [None]
  - HYPOTENSION [None]
  - LOSS OF CONSCIOUSNESS [None]
